FAERS Safety Report 6947151-5 (Version None)
Quarter: 2010Q3

REPORT INFORMATION
  Report Type: 
  Country: None (occurrence: None)
  Receive Date: 20100825
  Receipt Date: 20100804
  Transmission Date: 20110219
  Serious: Yes (Hospitalization, Other)
  Sender: FDA-Public Use
  Company Number: 2010080034

PATIENT
  Age: 17 Year
  Sex: Female

DRUGS (1)
  1. PENICILLAMINE [Suspect]
     Indication: HEPATO-LENTICULAR DEGENERATION
     Dosage: ORAL
     Route: 048

REACTIONS (6)
  - DEPRESSION [None]
  - MOVEMENT DISORDER [None]
  - PARANOIA [None]
  - PARKINSONISM [None]
  - SOCIAL PHOBIA [None]
  - TREMOR [None]
